FAERS Safety Report 5441248-7 (Version None)
Quarter: 2007Q3

REPORT INFORMATION
  Report Type: 
  Country: None (occurrence: None)
  Receive Date: 20070901
  Receipt Date: 20070821
  Transmission Date: 20080115
  Serious: Yes (Other)
  Sender: FDA-Public Use
  Company Number: US-PFIZER INC-2007071084

PATIENT
  Sex: Female
  Weight: 69.09 kg

DRUGS (8)
  1. LYRICA [Suspect]
     Indication: PAIN
  2. LYRICA [Suspect]
     Indication: PARAESTHESIA
  3. LYRICA [Suspect]
     Indication: MUSCULOSKELETAL STIFFNESS
  4. OXYCODONE HCL [Suspect]
  5. ACTONEL [Concomitant]
  6. ALPHAGAN [Concomitant]
  7. ANTIBIOTICS [Concomitant]
  8. XANAX [Concomitant]

REACTIONS (10)
  - ARTHRALGIA [None]
  - EMOTIONAL DISTRESS [None]
  - INFECTION [None]
  - INSOMNIA [None]
  - MALAISE [None]
  - MUSCULOSKELETAL STIFFNESS [None]
  - NASOPHARYNGITIS [None]
  - PAIN [None]
  - PARAESTHESIA [None]
  - POLYNEUROPATHY [None]
